FAERS Safety Report 17906675 (Version 1)
Quarter: 2020Q2

REPORT INFORMATION
  Report Type: Spontaneous
  Country: US (occurrence: US)
  Receive Date: 20200616
  Receipt Date: 20200616
  Transmission Date: 20200714
  Serious: No
  Sender: FDA-Public Use
  Company Number: US-ROCHE-2392660

PATIENT
  Sex: Male

DRUGS (12)
  1. AZULFIDINE [Concomitant]
     Active Substance: SULFASALAZINE
  2. METHOTREXATE. [Concomitant]
     Active Substance: METHOTREXATE
  3. ASPRIN [Concomitant]
     Active Substance: ASPIRIN
  4. OYSCO [Concomitant]
  5. TRAMADOL. [Concomitant]
     Active Substance: TRAMADOL
  6. METFORMIN [Concomitant]
     Active Substance: METFORMIN HYDROCHLORIDE
  7. FLOVENT [Concomitant]
     Active Substance: FLUTICASONE PROPIONATE
  8. LEVOTHYROXINE. [Concomitant]
     Active Substance: LEVOTHYROXINE
  9. FOLIC ACID. [Concomitant]
     Active Substance: FOLIC ACID
  10. LYRICA [Concomitant]
     Active Substance: PREGABALIN
  11. ACTEMRA [Suspect]
     Active Substance: TOCILIZUMAB
     Indication: RHEUMATOID ARTHRITIS
     Route: 058
     Dates: start: 20180208
  12. OMEPRAZOLE. [Concomitant]
     Active Substance: OMEPRAZOLE

REACTIONS (1)
  - Back pain [Unknown]
